FAERS Safety Report 5087075-4 (Version None)
Quarter: 2006Q3

REPORT INFORMATION
  Report Type: 
  Country: None (occurrence: None)
  Receive Date: 20060821
  Receipt Date: 20060803
  Transmission Date: 20061208
  Serious: Yes (Other)
  Sender: FDA-Public Use
  Company Number: 2006098605

PATIENT
  Age: 58 Year
  Sex: Female
  Weight: 147.8726 kg

DRUGS (5)
  1. LIPITOR [Suspect]
     Indication: BLOOD CHOLESTEROL INCREASED
     Dosage: 10 MG (10 MG, 1 IN 1 D)
     Dates: start: 20051201
  2. ALL OTHER THERAPEUTIC PRODUCTS [Concomitant]
  3. VITAMINS [Concomitant]
  4. AMITRIPTYLINE HCL [Concomitant]
  5. LIDODERM PATCH (LIDOCAINE HYDROCHLORIDE) [Concomitant]

REACTIONS (5)
  - ANXIETY [None]
  - BLOOD CHOLESTEROL INCREASED [None]
  - HYPOAESTHESIA FACIAL [None]
  - LOW DENSITY LIPOPROTEIN INCREASED [None]
  - PERIPHERAL SENSORY NEUROPATHY [None]
